FAERS Safety Report 23656908 (Version 1)
Quarter: 2024Q1

REPORT INFORMATION
  Report Type: Spontaneous
  Country: US (occurrence: US)
  Receive Date: 20240321
  Receipt Date: 20240321
  Transmission Date: 20240410
  Serious: No
  Sender: FDA-Public Use
  Company Number: US-TEVA-VS-3151192

PATIENT
  Age: 87 Year
  Sex: Male

DRUGS (1)
  1. ALBUTEROL SULFATE [Suspect]
     Active Substance: ALBUTEROL SULFATE
     Indication: Product used for unknown indication
     Dosage: STRENGTH: 90 MCG?DOSE FORM: INHALATION -AEROSOL
     Route: 055

REACTIONS (2)
  - Expired product administered [Unknown]
  - Medication error [Unknown]

NARRATIVE: CASE EVENT DATE: 20220501
